FAERS Safety Report 9538924 (Version 1)
Quarter: 2013Q3

REPORT INFORMATION
  Report Type: Report from Study
  Country: DE (occurrence: DE)
  Receive Date: 20130920
  Receipt Date: 20130920
  Transmission Date: 20140515
  Serious: Yes (Death, Hospitalization)
  Sender: FDA-Public Use
  Company Number: DE-SANOFI-AVENTIS-2013SA090988

PATIENT
  Sex: 0

DRUGS (2)
  1. ENOXAPARIN SODIUM [Suspect]
     Indication: ANTICOAGULANT THERAPY
     Route: 058
  2. PHENPROCOUMON [Concomitant]
     Indication: ANTICOAGULANT THERAPY
     Route: 048

REACTIONS (1)
  - Intestinal infarction [Fatal]
